FAERS Safety Report 4895756-8 (Version None)
Quarter: 2005Q4

REPORT INFORMATION
  Report Type: 
  Country: None (occurrence: None)
  Receive Date: 20051220
  Receipt Date: 20050913
  Transmission Date: 20060501
  Serious: Yes (Other)
  Sender: FDA-Public Use
  Company Number: 412134

PATIENT
  Age: 58 Year
  Sex: Female
  Weight: 55.8 kg

DRUGS (1)
  1. BONIVA [Suspect]
     Indication: OSTEOPOROSIS POSTMENOPAUSAL
     Dosage: 150 MG 1 PER MONTH ORAL
     Route: 048
     Dates: start: 20050715

REACTIONS (1)
  - DIARRHOEA [None]
